FAERS Safety Report 5885892-1 (Version None)
Quarter: 2008Q3

REPORT INFORMATION
  Report Type: 
  Country: None (occurrence: None)
  Receive Date: 20080917
  Receipt Date: 20080917
  Transmission Date: 20090109
  Serious: Yes (Hospitalization)
  Sender: FDA-Public Use
  Company Number: None

PATIENT
  Age: 57 Year
  Sex: Male
  Weight: 83.91 kg

DRUGS (1)
  1. HEPARIN [Suspect]
     Indication: ANTICOAGULANT THERAPY
     Dosage: 4000 UNITS PRN X 3 - IV BOLUS
     Route: 040
     Dates: start: 20080910, end: 20080910

REACTIONS (1)
  - PHARMACEUTICAL PRODUCT COMPLAINT [None]
